FAERS Safety Report 11250665 (Version 1)
Quarter: 2015Q3

REPORT INFORMATION
  Report Type: Spontaneous
  Country: US (occurrence: US)
  Receive Date: 20150708
  Receipt Date: 20150708
  Transmission Date: 20151125
  Serious: Yes (Death)
  Sender: FDA-Public Use
  Company Number: US-ELI_LILLY_AND_COMPANY-US201102001065

PATIENT
  Sex: Female
  Weight: 63.49 kg

DRUGS (1)
  1. GEMZAR [Suspect]
     Active Substance: GEMCITABINE HYDROCHLORIDE
     Indication: RECTAL CANCER
     Dosage: 1770 MG, UNK
     Route: 042
     Dates: start: 20100310, end: 20100324

REACTIONS (2)
  - Off label use [Unknown]
  - Disease progression [Fatal]
